FAERS Safety Report 10182584 (Version 2)
Quarter: 2014Q2

REPORT INFORMATION
  Report Type: Spontaneous
  Country: US (occurrence: None)
  Receive Date: 20140416
  Receipt Date: 20140604
  Transmission Date: 20141212
  Serious: Yes (Hospitalization)
  Sender: FDA-Public Use
  Company Number: 163-POMAL-14012372

PATIENT
  Age: 73 Year
  Sex: Female

DRUGS (10)
  1. POMALYST [Suspect]
     Indication: PLASMA CELL MYELOMA
     Dosage: 4 MG, 21 IN 21 D, PO
     Route: 048
     Dates: start: 20131217
  2. HYDROXYCHLOROQUINE SULFATE (HYDROXYCHLOROQUINE SULFATE) [Concomitant]
  3. CYCLOPHOSPHAMIDE [Concomitant]
  4. ACETAMINOPHEN EXTRA STRENGTH [Concomitant]
  5. DEXAMETHASONE [Concomitant]
  6. AMLODIPINE-ATORVASTATIN (CADUET) [Concomitant]
  7. LORTAB (VICODIN) [Concomitant]
  8. GABAPENTIN [Concomitant]
  9. MULTIVITAMIN [Concomitant]
  10. ACYCLOVIR (ACICLOVIR) (ACICLOVIR) [Concomitant]

REACTIONS (5)
  - Chills [None]
  - Pyrexia [None]
  - Bacterial infection [None]
  - Dehydration [None]
  - Full blood count decreased [None]
